FAERS Safety Report 10305585 (Version 1)
Quarter: 2014Q3

REPORT INFORMATION
  Report Type: Spontaneous
  Country: US (occurrence: None)
  Receive Date: 20140711
  Receipt Date: 20140711
  Transmission Date: 20150326
  Serious: Yes (Hospitalization)
  Sender: FDA-Public Use
  Company Number: 2014JUB00043

PATIENT
  Age: 72 Year
  Sex: Male

DRUGS (3)
  1. DONEPEZIL [Suspect]
     Active Substance: DONEPEZIL
     Indication: DEMENTIA ALZHEIMER^S TYPE
  2. METFORMIN ( METFORMIN) [Concomitant]
  3. LISINOPRIL ( LISINOPRIL) [Concomitant]

REACTIONS (3)
  - Syncope [None]
  - Atrial fibrillation [None]
  - Sick sinus syndrome [None]
